FAERS Safety Report 5874253-7 (Version None)
Quarter: 2008Q3

REPORT INFORMATION
  Report Type: 
  Country: None (occurrence: None)
  Receive Date: 20080908
  Receipt Date: 20080827
  Transmission Date: 20090109
  Serious: Yes (Death, Life-Threatening)
  Sender: FDA-Public Use
  Company Number: DE-ELI_LILLY_AND_COMPANY-DE200806001374

PATIENT
  Sex: Female
  Weight: 83 kg

DRUGS (5)
  1. XIGRIS [Suspect]
     Indication: SEPTIC SHOCK
     Dosage: 2.9 MG, EVERY HOUR (48 MG)
     Route: 042
     Dates: start: 20080115, end: 20080120
  2. HEPARIN [Concomitant]
     Indication: ANTICOAGULANT THERAPY
     Dosage: 4800 IE, UNKNOWN
     Route: 042
     Dates: start: 20080117, end: 20080121
  3. NORADRENALINE [Concomitant]
     Dosage: 4 IE, EVERY HOUR
     Route: 065
     Dates: start: 20080115
  4. VASOPRESSIN [Concomitant]
     Dosage: 0.5 MG, EVERY HOUR
     Route: 065
     Dates: start: 20080115
  5. EPINEPHRINE [Concomitant]
     Dosage: 0.5 MG, EVERY HOUR
     Route: 065
     Dates: start: 20080115

REACTIONS (2)
  - CARDIAC ARREST [None]
  - CEREBRAL HAEMORRHAGE [None]
